FAERS Safety Report 23413097 (Version 1)
Quarter: 2024Q1

REPORT INFORMATION
  Report Type: Spontaneous
  Country: US (occurrence: US)
  Receive Date: 20240117
  Receipt Date: 20240117
  Transmission Date: 20240410
  Serious: No
  Sender: FDA-Public Use
  Company Number: US-NOVOPROD-1127493

PATIENT
  Age: 77 Year
  Sex: Female

DRUGS (1)
  1. OZEMPIC [Suspect]
     Active Substance: SEMAGLUTIDE
     Indication: Type 2 diabetes mellitus
     Dosage: 0.5MG
     Route: 058
     Dates: end: 202306

REACTIONS (4)
  - Chills [Unknown]
  - Food craving [Unknown]
  - Unevaluable event [Unknown]
  - Product storage error [Unknown]

NARRATIVE: CASE EVENT DATE: 20230601
